FAERS Safety Report 20432859 (Version 5)
Quarter: 2023Q1

REPORT INFORMATION
  Report Type: Spontaneous
  Country: GB (occurrence: GB)
  Receive Date: 20220205
  Receipt Date: 20230202
  Transmission Date: 20230418
  Serious: Yes (Life-Threatening, Other)
  Sender: FDA-Public Use
  Company Number: GB-JNJFOC-20211226938

PATIENT
  Age: 63 Year
  Sex: Female

DRUGS (10)
  1. ACETAMINOPHEN [Suspect]
     Active Substance: ACETAMINOPHEN
     Indication: Anaesthesia
     Dosage: (10-20 MILLILITER)
     Route: 042
     Dates: start: 20211129
  2. EPINEPHRINE [Suspect]
     Active Substance: EPINEPHRINE
     Indication: Product used for unknown indication
     Dosage: UNK (5-10MIN OF AFTER INDUCTION OF ANAESTHESIA)
     Route: 042
  3. CHLORAPREP [Suspect]
     Active Substance: CHLORHEXIDINE GLUCONATE\ISOPROPYL ALCOHOL
     Indication: Anaesthesia
     Dosage: UNK
     Route: 065
     Dates: start: 20211129
  4. DEXAMETHASONE [Suspect]
     Active Substance: DEXAMETHASONE
     Indication: Anaesthesia
     Dosage: UNK
     Route: 042
     Dates: start: 20211129
  5. FENTANYL [Suspect]
     Active Substance: FENTANYL
     Indication: Anaesthesia
     Dosage: 100 MICROGRAM
     Route: 042
     Dates: start: 20211129
  6. GENTAMICIN [Suspect]
     Active Substance: GENTAMICIN
     Indication: Anaesthesia
     Dosage: 160 MILLIGRAM
     Route: 042
     Dates: start: 20211129
  7. LEVOBUPIVACAINE HYDROCHLORIDE [Suspect]
     Active Substance: LEVOBUPIVACAINE HYDROCHLORIDE
     Indication: Anaesthesia
     Dosage: 0.5 PERCENT
     Route: 058
     Dates: start: 20211129
  8. PROPOFOL [Suspect]
     Active Substance: PROPOFOL
     Indication: Anaesthesia
     Dosage: 200 MILLIGRAM
     Route: 042
     Dates: start: 20211129
  9. TEICOPLANIN [Suspect]
     Active Substance: TEICOPLANIN
     Indication: Anaesthesia
     Dosage: 800 MILLIGRAM
     Route: 042
     Dates: start: 20211129
  10. EPINEPHRINE [Concomitant]
     Active Substance: EPINEPHRINE
     Indication: Anaphylaxis treatment
     Dosage: UNK
     Route: 065

REACTIONS (3)
  - Anaphylactic reaction [Recovered/Resolved]
  - Off label use [Unknown]
  - Product use in unapproved indication [Unknown]

NARRATIVE: CASE EVENT DATE: 20211129
